FAERS Safety Report 19190138 (Version 1)
Quarter: 2021Q2

REPORT INFORMATION
  Report Type: Report from Study
  Country: GB (occurrence: GB)
  Receive Date: 20210428
  Receipt Date: 20210428
  Transmission Date: 20210717
  Serious: Yes (Death)
  Sender: FDA-Public Use
  Company Number: GB-PFIZER INC-2021466819

PATIENT

DRUGS (4)
  1. OXALIPLATIN. [Suspect]
     Active Substance: OXALIPLATIN
     Indication: BILIARY NEOPLASM
     Dosage: 85 MG/M2, CYCLIC (IN 250?500 ML OF 5% GLUCOSE; 2?H INTRAVENOUS INFUSION)
     Route: 042
  2. CALCIUM FOLINATE [Suspect]
     Active Substance: LEUCOVORIN CALCIUM
     Indication: BILIARY NEOPLASM
     Dosage: 350 MG, CYCLIC (2?H INTRAVENOUS INFUSION)
     Route: 042
  3. FLUOROURACIL. [Suspect]
     Active Substance: FLUOROURACIL
     Dosage: 2400 MG/M2, CYCLIC (STARTING ON DAY 1 AND FINISHING ON DAY 2)
     Route: 042
  4. FLUOROURACIL. [Suspect]
     Active Substance: FLUOROURACIL
     Indication: BILIARY NEOPLASM
     Dosage: 400 MG/M2, CYCLIC (5?10 MIN BOLUS) ON DAY 1
     Route: 040

REACTIONS (1)
  - Febrile neutropenia [Fatal]
